FAERS Safety Report 4517080-5 (Version None)
Quarter: 2004Q4

REPORT INFORMATION
  Report Type: 
  Country: None (occurrence: None)
  Receive Date: 20041130
  Receipt Date: 20041117
  Transmission Date: 20050328
  Serious: Yes (Other)
  Sender: FDA-Public Use
  Company Number: 2003032538

PATIENT
  Age: 50 Year
  Sex: Male
  Weight: 95 kg

DRUGS (5)
  1. FLUCONAZOLE [Suspect]
     Indication: ILL-DEFINED DISORDER
     Dosage: (50 MG)
     Dates: start: 20030714
  2. LAMOTRIGINE [Suspect]
     Indication: EPILEPSY
     Dosage: (300 MG)
     Dates: start: 20030408
  3. OMEPRAZOLE [Concomitant]
  4. SALBUTAMOL (SALBUTAMOL) [Concomitant]
  5. FLUTICASONE PROPIONATE [Concomitant]

REACTIONS (3)
  - CONDITION AGGRAVATED [None]
  - CONVULSION [None]
  - DRUG INTERACTION [None]
